FAERS Safety Report 8457008-9 (Version None)
Quarter: 2012Q2

REPORT INFORMATION
  Report Type: 
  Country: None (occurrence: None)
  Receive Date: 20120621
  Receipt Date: 20120612
  Transmission Date: 20120825
  Serious: Yes (Other)
  Sender: FDA-Public Use
  Company Number: US-ASTRAZENECA-2012SE12465

PATIENT
  Age: 52 Year
  Sex: Male
  Weight: 79.4 kg

DRUGS (7)
  1. DEPAKOTE [Concomitant]
     Dates: start: 20110601
  2. LITHIUM [Concomitant]
     Dates: end: 20120401
  3. SEROQUEL XR [Suspect]
     Indication: SCHIZOPHRENIA
     Route: 048
     Dates: start: 20110401
  4. VICODIN [Concomitant]
  5. SEROQUEL XR [Suspect]
     Indication: BIPOLAR DISORDER
     Route: 048
     Dates: start: 20110401
  6. SEROQUEL XR [Suspect]
     Indication: BIPOLAR I DISORDER
     Route: 048
     Dates: start: 20110401
  7. ANTIBIOTICS [Concomitant]
     Indication: TOOTH DISORDER

REACTIONS (11)
  - COMMUNICATION DISORDER [None]
  - MULTIPLE FRACTURES [None]
  - RHEUMATOID ARTHRITIS [None]
  - FEELING ABNORMAL [None]
  - WEIGHT INCREASED [None]
  - FOOT FRACTURE [None]
  - MENTAL IMPAIRMENT [None]
  - INTENTIONAL DRUG MISUSE [None]
  - AGGRESSION [None]
  - ABASIA [None]
  - MENTAL DISORDER [None]
